FAERS Safety Report 19729685 (Version 2)
Quarter: 2021Q3

REPORT INFORMATION
  Report Type: Spontaneous
  Country: US (occurrence: US)
  Receive Date: 20210820
  Receipt Date: 20210910
  Transmission Date: 20211014
  Serious: No
  Sender: FDA-Public Use
  Company Number: US-PFIZER INC-202100925093

PATIENT
  Age: 88 Year
  Sex: Female
  Weight: 65.32 kg

DRUGS (1)
  1. TOVIAZ [Suspect]
     Active Substance: FESOTERODINE FUMARATE
     Indication: BLADDER DISORDER
     Dosage: 4MG, DAILY
     Dates: start: 2021

REACTIONS (1)
  - Therapeutic product effect incomplete [Unknown]
